FAERS Safety Report 13473014 (Version 1)
Quarter: 2017Q2

REPORT INFORMATION
  Report Type: Report from Study
  Country: US (occurrence: US)
  Receive Date: 20170424
  Receipt Date: 20170424
  Transmission Date: 20170830
  Serious: Yes (Death, Other)
  Sender: FDA-Public Use
  Company Number: US-PFIZER INC-2017173837

PATIENT

DRUGS (3)
  1. INTERLEUKIN-2 [Suspect]
     Active Substance: ALDESLEUKIN
     Indication: INTRAOCULAR MELANOMA
     Dosage: 720000 IU/KG, EVERY 8 H
     Route: 042
  2. CYCLOPHOSPHAMIDE. [Suspect]
     Active Substance: CYCLOPHOSPHAMIDE
     Indication: INTRAOCULAR MELANOMA
     Dosage: 60 MG/KG, DAILY (FOR 2 DAYS)
     Route: 042
  3. FLUDARABINE PHOSPHATE. [Suspect]
     Active Substance: FLUDARABINE PHOSPHATE
     Indication: INTRAOCULAR MELANOMA
     Dosage: 25 MG/M2, DAILY (FOR 5 DAYS)

REACTIONS (6)
  - Cerebral ischaemia [Unknown]
  - Multiple organ dysfunction syndrome [Fatal]
  - Neutropenia [Unknown]
  - Sepsis [Fatal]
  - Pneumonia [Unknown]
  - Arrhythmia [Unknown]
